FAERS Safety Report 12702380 (Version 2)
Quarter: 2016Q3

REPORT INFORMATION
  Report Type: Spontaneous
  Country: CN (occurrence: CN)
  Receive Date: 20160831
  Receipt Date: 20160902
  Transmission Date: 20161109
  Serious: Yes (Other)
  Sender: FDA-Public Use
  Company Number: CN-009507513-1608CHN014043

PATIENT
  Age: 85 Year
  Sex: Male
  Weight: 45 kg

DRUGS (1)
  1. TIENAM [Suspect]
     Active Substance: CILASTATIN SODIUM\IMIPENEM
     Indication: INFECTION
     Dosage: 1 G, TID
     Route: 041
     Dates: start: 20160517, end: 20160525

REACTIONS (1)
  - Tic [Recovering/Resolving]

NARRATIVE: CASE EVENT DATE: 20160525
